FAERS Safety Report 5805452-8 (Version None)
Quarter: 2008Q3

REPORT INFORMATION
  Report Type: 
  Country: None (occurrence: None)
  Receive Date: 20080710
  Receipt Date: 20080630
  Transmission Date: 20090109
  Serious: Yes (Hospitalization)
  Sender: FDA-Public Use
  Company Number: JP-JNJFOC-20080700860

PATIENT
  Age: 26 Year
  Sex: Male

DRUGS (5)
  1. RISPERDAL [Suspect]
     Indication: DELIRIUM
     Route: 048
  2. SSRI [Concomitant]
     Indication: DELIRIUM
     Route: 048
  3. SSRI [Concomitant]
     Indication: INSOMNIA
     Route: 048
  4. FLUVOXAMINE MALEATE [Concomitant]
     Indication: INSOMNIA
     Route: 048
  5. MELATONIN [Concomitant]
     Indication: DELIRIUM
     Route: 065

REACTIONS (8)
  - AGITATION [None]
  - CATATONIA [None]
  - HYPERHIDROSIS [None]
  - INSOMNIA [None]
  - MUSCLE TIGHTNESS [None]
  - OPISTHOTONUS [None]
  - SEROTONIN SYNDROME [None]
  - SPASMODIC DYSPHONIA [None]
